FAERS Safety Report 7472859-5 (Version None)
Quarter: 2011Q2

REPORT INFORMATION
  Report Type: 
  Country: None (occurrence: None)
  Receive Date: 20110503
  Receipt Date: 20110419
  Transmission Date: 20111010
  Serious: Yes (Hospitalization, Other)
  Sender: FDA-Public Use
  Company Number: 2011SP000218

PATIENT
  Age: 35 Year
  Sex: Female
  Weight: 78.0187 kg

DRUGS (2)
  1. COUMADIN [Suspect]
     Indication: ANTICOAGULANT THERAPY
  2. NUVARING [Suspect]
     Indication: MENSTRUATION IRREGULAR
     Dates: start: 20081201, end: 20090101

REACTIONS (10)
  - INJURY [None]
  - ABASIA [None]
  - MENORRHAGIA [None]
  - OVARIAN CYST [None]
  - OVARIAN MASS [None]
  - IMPAIRED WORK ABILITY [None]
  - ANAEMIA [None]
  - DYSSTASIA [None]
  - DEEP VEIN THROMBOSIS [None]
  - ACTIVITIES OF DAILY LIVING IMPAIRED [None]
